FAERS Safety Report 23842147 (Version 1)
Quarter: 2024Q2

REPORT INFORMATION
  Report Type: Spontaneous
  Country: US (occurrence: US)
  Receive Date: 20240510
  Receipt Date: 20240510
  Transmission Date: 20240716
  Serious: No
  Sender: FDA-Public Use
  Company Number: US-LEADINGPHARMA-US-2024LEASPO00119

PATIENT

DRUGS (1)
  1. OXYBUTYNIN CHLORIDE [Suspect]
     Active Substance: OXYBUTYNIN CHLORIDE
     Indication: Bladder irritation
     Route: 065

REACTIONS (4)
  - Weight increased [Recovering/Resolving]
  - Lethargy [Unknown]
  - Crying [Unknown]
  - Feeling abnormal [Unknown]
